FAERS Safety Report 14763105 (Version 1)
Quarter: 2018Q2

REPORT INFORMATION
  Report Type: Spontaneous
  Country: FR (occurrence: FR)
  Receive Date: 20180416
  Receipt Date: 20180416
  Transmission Date: 20180711
  Serious: Yes (Other)
  Sender: FDA-Public Use
  Company Number: FR-ASTELLAS-2018US017506

PATIENT
  Age: 39 Year
  Sex: Male

DRUGS (5)
  1. MYCOPHENOLATE MOFETIL. [Suspect]
     Active Substance: MYCOPHENOLATE MOFETIL
     Indication: RENAL AND PANCREAS TRANSPLANT
     Route: 065
  2. METHYLPREDNISOLONE. [Concomitant]
     Active Substance: METHYLPREDNISOLONE
     Indication: RENAL AND PANCREAS TRANSPLANT
     Route: 065
  3. ANTITHYMOCYTE IMMUNOGLOBULIN (RABBIT) [Concomitant]
     Active Substance: LAPINE T-LYMPHOCYTE IMMUNE GLOBULIN
     Indication: RENAL AND PANCREAS TRANSPLANT
     Route: 065
  4. PREDNISONE. [Concomitant]
     Active Substance: PREDNISONE
     Indication: RENAL AND PANCREAS TRANSPLANT
     Route: 065
  5. TACROLIMUS. [Suspect]
     Active Substance: TACROLIMUS
     Indication: RENAL AND PANCREAS TRANSPLANT
     Dosage: UNK UNK, UNKNOWN FREQ. (TARGET TACROLIMUS LEVELS OF 8-10 NG/ML)
     Route: 065

REACTIONS (9)
  - Arteriosclerosis [Unknown]
  - Off label use [Unknown]
  - Histology abnormal [Unknown]
  - Renal tubular atrophy [Unknown]
  - Polyomavirus-associated nephropathy [Recovered/Resolved]
  - Kidney fibrosis [Unknown]
  - Focal segmental glomerulosclerosis [Unknown]
  - Delayed graft function [Recovering/Resolving]
  - Renal cancer [Unknown]

NARRATIVE: CASE EVENT DATE: 2007
